FAERS Safety Report 9206073 (Version 1)
Quarter: 2013Q2

REPORT INFORMATION
  Report Type: Spontaneous
  Country: US (occurrence: None)
  Receive Date: 20130403
  Receipt Date: 20130403
  Transmission Date: 20140414
  Serious: Yes (Death, Life-Threatening, Hospitalization)
  Sender: FDA-Public Use
  Company Number: None

PATIENT
  Age: 82 Year
  Sex: Male
  Weight: 57.6 kg

DRUGS (1)
  1. WARFARIN [Suspect]
     Indication: CEREBROVASCULAR ACCIDENT
     Dosage: 5MG, QHS, PO
     Route: 048
     Dates: start: 20121130, end: 20130212

REACTIONS (10)
  - Fall [None]
  - Limb injury [None]
  - Haemorrhage [None]
  - Headache [None]
  - Abdominal pain [None]
  - Subdural haematoma [None]
  - Craniocerebral injury [None]
  - Renal failure [None]
  - Myocardial infarction [None]
  - Weaning failure [None]
